FAERS Safety Report 19228919 (Version 1)
Quarter: 2021Q2

REPORT INFORMATION
  Report Type: Report from Study
  Country: BR (occurrence: BR)
  Receive Date: 20210507
  Receipt Date: 20210507
  Transmission Date: 20210717
  Serious: Yes (Other)
  Sender: FDA-Public Use
  Company Number: NVSC2021BR100808

PATIENT
  Sex: Female

DRUGS (1)
  1. GILENYA [Suspect]
     Active Substance: FINGOLIMOD HYDROCHLORIDE
     Indication: MULTIPLE SCLEROSIS
     Dosage: UNK
     Route: 065
     Dates: start: 2018

REACTIONS (10)
  - Dengue fever [Unknown]
  - Ill-defined disorder [Not Recovered/Not Resolved]
  - Hypertension [Unknown]
  - Hypoaesthesia [Recovering/Resolving]
  - Nausea [Recovering/Resolving]
  - Dizziness postural [Recovering/Resolving]
  - Blindness [Not Recovered/Not Resolved]
  - Hypoacusis [Not Recovered/Not Resolved]
  - Mobility decreased [Not Recovered/Not Resolved]
  - Headache [Unknown]
